FAERS Safety Report 21091196 (Version 1)
Quarter: 2022Q3

REPORT INFORMATION
  Report Type: Spontaneous
  Country: GB (occurrence: GB)
  Receive Date: 20220716
  Receipt Date: 20220716
  Transmission Date: 20221027
  Serious: Yes (Other)
  Sender: FDA-Public Use
  Company Number: GB-MHRA-MED-202207051043488210-DQKVL

PATIENT
  Age: 42 Year
  Sex: Male

DRUGS (1)
  1. ALLOPURINOL [Suspect]
     Active Substance: ALLOPURINOL
     Indication: Gout
     Dosage: 100 MILLIGRAM DAILY; UNIT DOSE : 100 MG  , FREQUENCY : 1 , FREQUENCY TIME : 1 DAYS, THERAPY DURATION
     Route: 065
     Dates: start: 20220620, end: 20220620

REACTIONS (1)
  - Anaphylactic reaction [Recovered/Resolved]

NARRATIVE: CASE EVENT DATE: 20220620
